FAERS Safety Report 5532324-9 (Version None)
Quarter: 2007Q4

REPORT INFORMATION
  Report Type: 
  Country: None (occurrence: None)
  Receive Date: 20071203
  Receipt Date: 20071121
  Transmission Date: 20080405
  Serious: Yes (Hospitalization, Disabling, Other)
  Sender: FDA-Public Use
  Company Number: US-ELI_LILLY_AND_COMPANY-US200708006106

PATIENT
  Age: 53 Year
  Sex: Male

DRUGS (3)
  1. CYMBALTA [Suspect]
     Indication: DEPRESSION
     Dosage: 60 MG, DAILY (1/D)
     Route: 048
     Dates: start: 20051001, end: 20070703
  2. VICODIN [Concomitant]
     Indication: BACK PAIN
     Dates: start: 19970101
  3. DURAGESIC-100 [Concomitant]
     Indication: BACK PAIN
     Dates: start: 19970101

REACTIONS (31)
  - ACTIVITIES OF DAILY LIVING IMPAIRED [None]
  - AGITATION [None]
  - AMNESIA [None]
  - ANXIETY [None]
  - ASTHENIA [None]
  - BELLIGERENCE [None]
  - BLOOD GLUCOSE INCREASED [None]
  - CONFUSIONAL STATE [None]
  - DELIRIUM [None]
  - DEPRESSION [None]
  - DISTURBANCE IN ATTENTION [None]
  - DRUG WITHDRAWAL SYNDROME [None]
  - FOOD AVERSION [None]
  - HALLUCINATION [None]
  - HEADACHE [None]
  - HOSTILITY [None]
  - INSOMNIA [None]
  - LETHARGY [None]
  - LOSS OF CONSCIOUSNESS [None]
  - MANIA [None]
  - MENTAL DISORDER [None]
  - MENTAL STATUS CHANGES [None]
  - NERVOUSNESS [None]
  - PARANOIA [None]
  - ROAD TRAFFIC ACCIDENT [None]
  - SINUSITIS [None]
  - SOMNOLENCE [None]
  - SUICIDAL IDEATION [None]
  - SYNCOPE [None]
  - TREMOR [None]
  - UNRESPONSIVE TO STIMULI [None]
